FAERS Safety Report 10012981 (Version 1)
Quarter: 2014Q1

REPORT INFORMATION
  Report Type: Spontaneous
  Country: US (occurrence: US)
  Receive Date: 20140314
  Receipt Date: 20140314
  Transmission Date: 20141002
  Serious: No
  Sender: FDA-Public Use
  Company Number: US-PFIZER INC-2014071527

PATIENT
  Age: 71 Year
  Sex: Female
  Weight: 77.1 kg

DRUGS (1)
  1. ADVIL GELCAPS [Suspect]
     Indication: PROCEDURAL PAIN
     Dosage: UNK, ONCE A DAY
     Route: 048
     Dates: end: 201402

REACTIONS (1)
  - Migraine [Unknown]
